FAERS Safety Report 17664837 (Version 2)
Quarter: 2021Q1

REPORT INFORMATION
  Report Type: Spontaneous
  Country: US (occurrence: US)
  Receive Date: 20200414
  Receipt Date: 20210215
  Transmission Date: 20210419
  Serious: Yes (Other)
  Sender: FDA-Public Use
  Company Number: US-PFIZER INC-2020149685

PATIENT
  Age: 65 Year
  Sex: Female

DRUGS (2)
  1. METHOTREXATE. [Concomitant]
     Active Substance: METHOTREXATE
  2. XELJANZ XR [Suspect]
     Active Substance: TOFACITINIB CITRATE
     Dosage: 11 MG, UNK
     Dates: start: 202003

REACTIONS (6)
  - Urinary tract infection bacterial [Unknown]
  - Constipation [Unknown]
  - Headache [Recovered/Resolved]
  - Functional gastrointestinal disorder [Unknown]
  - Rhinorrhoea [Unknown]
  - Dizziness [Unknown]
